FAERS Safety Report 16573217 (Version 3)
Quarter: 2019Q4

REPORT INFORMATION
  Report Type: Spontaneous
  Country: US (occurrence: US)
  Receive Date: 20190715
  Receipt Date: 20191018
  Transmission Date: 20200122
  Serious: Yes (Disabling, Other)
  Sender: FDA-Public Use
  Company Number: US-REGENERON PHARMACEUTICALS, INC.-2019-35619

PATIENT

DRUGS (3)
  1. EYLEA [Suspect]
     Active Substance: AFLIBERCEPT
     Dosage: OD
     Route: 031
     Dates: start: 20190529, end: 20190529
  2. EYLEA [Suspect]
     Active Substance: AFLIBERCEPT
     Dosage: OD, LAST DOSE
     Route: 031
     Dates: start: 20190603, end: 20190603
  3. EYLEA [Suspect]
     Active Substance: AFLIBERCEPT
     Indication: NEOVASCULAR AGE-RELATED MACULAR DEGENERATION
     Dosage: 0.05CC, Q8W, OD
     Route: 031
     Dates: start: 20190123, end: 20190603

REACTIONS (2)
  - Non-infectious endophthalmitis [Not Recovered/Not Resolved]
  - Blindness transient [Recovered/Resolved]

NARRATIVE: CASE EVENT DATE: 20190603
